FAERS Safety Report 10418037 (Version 2)
Quarter: 2014Q4

REPORT INFORMATION
  Report Type: Spontaneous
  Country: FR (occurrence: None)
  Receive Date: 20140827
  Receipt Date: 20141216
  Transmission Date: 20150528
  Serious: Yes (Death, Hospitalization)
  Sender: FDA-Public Use
  Company Number: NSR_01610_2014

PATIENT
  Age: 46 Year
  Sex: Male

DRUGS (3)
  1. BACLOFEN. [Suspect]
     Active Substance: BACLOFEN
     Indication: ALCOHOLISM
  2. ALIMEMAZINE [Concomitant]
     Active Substance: TRIMEPRAZINE
  3. OXAZEPAM. [Concomitant]
     Active Substance: OXAZEPAM

REACTIONS (13)
  - Myocardial infarction [None]
  - Lactic acidosis [None]
  - Intentional overdose [None]
  - Coma [None]
  - Off label use [None]
  - Acute kidney injury [None]
  - Cardiac arrest [None]
  - Toxicity to various agents [None]
  - Hepatic failure [None]
  - Multi-organ failure [None]
  - Haemodialysis [None]
  - Hypothermia [None]
  - Mydriasis [None]
